FAERS Safety Report 18601736 (Version 2)
Quarter: 2021Q1

REPORT INFORMATION
  Report Type: Report from Study
  Country: US (occurrence: US)
  Receive Date: 20201210
  Receipt Date: 20210106
  Transmission Date: 20210419
  Serious: Yes (Hospitalization)
  Sender: FDA-Public Use
  Company Number: US-EISAI MEDICAL RESEARCH-EC-2020-084950

PATIENT
  Age: 83 Year
  Sex: Female
  Weight: 54 kg

DRUGS (12)
  1. ATENOLOL. [Concomitant]
     Active Substance: ATENOLOL
     Route: 048
  2. LEVOTHYROXINE. [Concomitant]
     Active Substance: LEVOTHYROXINE
     Route: 048
  3. ELIQUIS [Concomitant]
     Active Substance: APIXABAN
     Route: 048
  4. TYLENOL [Concomitant]
     Active Substance: ACETAMINOPHEN
     Route: 048
  5. LOSARTAN. [Concomitant]
     Active Substance: LOSARTAN
     Route: 048
  6. LENVIMA [Suspect]
     Active Substance: LENVATINIB
     Route: 048
     Dates: start: 20201201
  7. KEYTRUDA [Concomitant]
     Active Substance: PEMBROLIZUMAB
     Route: 041
  8. ONDANSETRON [Concomitant]
     Active Substance: ONDANSETRON
     Route: 048
  9. OMEPRAZOLE. [Concomitant]
     Active Substance: OMEPRAZOLE
     Route: 048
  10. LENVIMA [Suspect]
     Active Substance: LENVATINIB
     Indication: ENDOMETRIAL CANCER
     Route: 048
     Dates: start: 2020, end: 20201117
  11. GABAPENTIN. [Concomitant]
     Active Substance: GABAPENTIN
     Route: 048
  12. FLECAINIDE [Concomitant]
     Active Substance: FLECAINIDE
     Route: 048

REACTIONS (4)
  - Gallbladder disorder [Unknown]
  - Nausea [Recovered/Resolved]
  - Weight decreased [Recovering/Resolving]
  - Abdominal pain [Recovered/Resolved]

NARRATIVE: CASE EVENT DATE: 202011
